FAERS Safety Report 19025432 (Version 1)
Quarter: 2021Q1

REPORT INFORMATION
  Report Type: Spontaneous
  Country: US (occurrence: US)
  Receive Date: 20210317
  Receipt Date: 20210317
  Transmission Date: 20210420
  Serious: Yes (Hospitalization)
  Sender: FDA-Public Use
  Company Number: None

PATIENT
  Age: 76 Year
  Sex: Female
  Weight: 44.9 kg

DRUGS (3)
  1. LEUCOVORIN CALCIUM 552MG [Suspect]
     Active Substance: LEUCOVORIN CALCIUM
     Dates: end: 20210311
  2. 5?FLUOROURACIL (5?FU) 3312MG [Suspect]
     Active Substance: FLUOROURACIL
     Dates: end: 20210311
  3. ONIVYDE [Suspect]
     Active Substance: IRINOTECAN HYDROCHLORIDE
     Dates: end: 20210311

REACTIONS (6)
  - Haematemesis [None]
  - Vomiting [None]
  - Nausea [None]
  - Obstruction gastric [None]
  - Abdominal pain [None]
  - Hypotension [None]

NARRATIVE: CASE EVENT DATE: 20210314
